FAERS Safety Report 5524665-6 (Version None)
Quarter: 2007Q4

REPORT INFORMATION
  Report Type: 
  Country: None (occurrence: None)
  Receive Date: 20071123
  Receipt Date: 20071116
  Transmission Date: 20080405
  Serious: Yes (Other)
  Sender: FDA-Public Use
  Company Number: US-SHR-US-2007-043564

PATIENT
  Sex: Male

DRUGS (1)
  1. ULTRAVIST 370 [Suspect]
     Dates: start: 20071101, end: 20071101

REACTIONS (1)
  - CONTRAST MEDIA REACTION [None]
